FAERS Safety Report 6323330-5 (Version None)
Quarter: 2009Q3

REPORT INFORMATION
  Report Type: 
  Country: None (occurrence: None)
  Receive Date: 20090824
  Receipt Date: 20090408
  Transmission Date: 20100115
  Serious: No
  Sender: FDA-Public Use
  Company Number: US-ABBOTT-09P-163-0567342-00

PATIENT
  Sex: Female

DRUGS (9)
  1. NIASPAN [Suspect]
     Indication: BLOOD CHOLESTEROL INCREASED
     Dosage: TAKEN AT BEDTIME
     Dates: start: 20090324
  2. NIASPAN [Suspect]
     Indication: BLOOD TRIGLYCERIDES INCREASED
  3. SYNTHROID [Concomitant]
     Indication: DRUG USE FOR UNKNOWN INDICATION
  4. LIPITOR [Concomitant]
     Indication: DRUG USE FOR UNKNOWN INDICATION
  5. MAXZIDE [Concomitant]
     Indication: DRUG USE FOR UNKNOWN INDICATION
  6. BUSPAR [Concomitant]
     Indication: DRUG USE FOR UNKNOWN INDICATION
  7. WELLBUTRIN [Concomitant]
     Indication: DRUG USE FOR UNKNOWN INDICATION
  8. TRANZENE [Concomitant]
     Indication: DRUG USE FOR UNKNOWN INDICATION
     Dosage: TAKEN AT BEDTIME
  9. VICODIN [Concomitant]
     Indication: BACK PAIN

REACTIONS (3)
  - BACK PAIN [None]
  - HYPERGLYCAEMIA [None]
  - OEDEMA PERIPHERAL [None]
